FAERS Safety Report 9591696 (Version 1)
Quarter: 2013Q4

REPORT INFORMATION
  Report Type: Spontaneous
  Country: US (occurrence: US)
  Receive Date: 20131003
  Receipt Date: 20131003
  Transmission Date: 20140711
  Serious: No
  Sender: FDA-Public Use
  Company Number: US-AMGEN-USASP2012082297

PATIENT
  Age: 30 Year
  Sex: Female

DRUGS (2)
  1. ENBREL [Suspect]
     Indication: PSORIASIS
     Dosage: UNK
     Dates: start: 20120815, end: 20121129
  2. HUMIRA [Concomitant]
     Dosage: UNK

REACTIONS (2)
  - Pharyngeal oedema [Not Recovered/Not Resolved]
  - Psoriasis [Not Recovered/Not Resolved]
